FAERS Safety Report 17010450 (Version 1)
Quarter: 2019Q4

REPORT INFORMATION
  Report Type: Spontaneous
  Country: US (occurrence: US)
  Receive Date: 20191107
  Receipt Date: 20191107
  Transmission Date: 20200122
  Serious: Yes (Hospitalization)
  Sender: FDA-Public Use
  Company Number: None

PATIENT
  Sex: Female

DRUGS (4)
  1. WOMENS ONE [Concomitant]
     Dates: start: 20180409
  2. KLONOPIN [Concomitant]
     Active Substance: CLONAZEPAM
     Dates: start: 20180409
  3. PROZAC [Concomitant]
     Active Substance: FLUOXETINE HYDROCHLORIDE
     Dates: start: 20180409
  4. HUMIRA [Suspect]
     Active Substance: ADALIMUMAB
     Indication: CROHN^S DISEASE
     Dosage: ?          OTHER FREQUENCY:EVERY 14 DAYS;?
     Route: 058
     Dates: start: 20180413

REACTIONS (3)
  - Abdominal pain [None]
  - Weight decreased [None]
  - Post procedural complication [None]
